FAERS Safety Report 22077657 (Version 3)
Quarter: 2023Q4

REPORT INFORMATION
  Report Type: Spontaneous
  Country: AR (occurrence: AR)
  Receive Date: 20230309
  Receipt Date: 20231017
  Transmission Date: 20240110
  Serious: Yes (Hospitalization, Other)
  Sender: FDA-Public Use
  Company Number: AR-BIOVITRUM-2023-AR-00597

PATIENT
  Sex: Female
  Weight: 68 kg

DRUGS (1)
  1. NITISINONE [Suspect]
     Active Substance: NITISINONE
     Indication: Product used for unknown indication
     Dosage: DAILY

REACTIONS (4)
  - Premature rupture of membranes [Unknown]
  - Amniotic cavity infection [Unknown]
  - Exposure during pregnancy [Unknown]
  - Haematoma [Recovering/Resolving]

NARRATIVE: CASE EVENT DATE: 20220901
